FAERS Safety Report 17781038 (Version 1)
Quarter: 2020Q2

REPORT INFORMATION
  Report Type: Spontaneous
  Country: US (occurrence: US)
  Receive Date: 20200514
  Receipt Date: 20200514
  Transmission Date: 20200714
  Serious: Yes (Other)
  Sender: FDA-Public Use
  Company Number: US-HIKMA PHARMACEUTICALS USA INC.-US-H14001-20-02321

PATIENT
  Sex: Female

DRUGS (1)
  1. OXYTOCIN. [Suspect]
     Active Substance: OXYTOCIN
     Indication: PRODUCT USED FOR UNKNOWN INDICATION
     Route: 065

REACTIONS (14)
  - Depression [Unknown]
  - Constipation [Unknown]
  - Irritability [Unknown]
  - Abnormal behaviour [Unknown]
  - Malaise [Unknown]
  - Mood swings [Unknown]
  - Fatigue [Unknown]
  - Drug dependence [Unknown]
  - Hypopnoea [Unknown]
  - Coordination abnormal [Unknown]
  - Motor dysfunction [Unknown]
  - Drug withdrawal syndrome [Unknown]
  - Anxiety [Unknown]
  - Female sexual arousal disorder [Unknown]
